FAERS Safety Report 8247339-X (Version None)
Quarter: 2012Q1

REPORT INFORMATION
  Report Type: 
  Country: None (occurrence: None)
  Receive Date: 20120330
  Receipt Date: 20120326
  Transmission Date: 20120608
  Serious: Yes (Death, Life-Threatening, Hospitalization, Other)
  Sender: FDA-Public Use
  Company Number: GB-JNJFOC-20120313124

PATIENT
  Age: 48 Year
  Sex: Female

DRUGS (10)
  1. HALOPERIDOL [Suspect]
     Indication: EMOTIONAL DISTRESS
     Route: 030
     Dates: start: 20101122
  2. HALOPERIDOL [Suspect]
     Route: 030
     Dates: start: 20101117
  3. LORAZEPAM [Suspect]
     Route: 030
     Dates: start: 20101116
  4. LORAZEPAM [Suspect]
     Indication: EMOTIONAL DISTRESS
     Route: 030
     Dates: start: 20101117
  5. LORAZEPAM [Suspect]
     Route: 030
     Dates: start: 20101117
  6. HALOPERIDOL [Suspect]
     Route: 030
     Dates: start: 20101117
  7. HALOPERIDOL [Suspect]
     Indication: AGITATION
     Route: 030
     Dates: start: 20101122
  8. LORAZEPAM [Suspect]
     Route: 030
     Dates: start: 20101122
  9. LORAZEPAM [Suspect]
     Route: 030
     Dates: start: 20101116
  10. LORAZEPAM [Suspect]
     Indication: AGITATION
     Route: 030
     Dates: start: 20101122

REACTIONS (4)
  - DEEP VEIN THROMBOSIS [None]
  - LOSS OF CONSCIOUSNESS [None]
  - PULMONARY EMBOLISM [None]
  - UNRESPONSIVE TO STIMULI [None]
